FAERS Safety Report 4836847-7 (Version None)
Quarter: 2005Q4

REPORT INFORMATION
  Report Type: 
  Country: None (occurrence: None)
  Receive Date: 20051121
  Receipt Date: 20051102
  Transmission Date: 20060501
  Serious: Yes (Hospitalization)
  Sender: FDA-Public Use
  Company Number: 200509621

PATIENT
  Age: 84 Year
  Sex: Female

DRUGS (8)
  1. ACULAR [Suspect]
     Indication: MACULAR OEDEMA
  2. NORSET [Suspect]
  3. LANTUS [Concomitant]
  4. DIAMICRON [Concomitant]
  5. DIGOXIN [Concomitant]
  6. EURELIX [Concomitant]
  7. CARDIOPATCH [Concomitant]
  8. KARDEGIC [Concomitant]

REACTIONS (3)
  - DERMATITIS EXFOLIATIVE [None]
  - PYREXIA [None]
  - TOXIC SKIN ERUPTION [None]
